FAERS Safety Report 12012498 (Version 1)
Quarter: 2016Q1

REPORT INFORMATION
  Report Type: Report from Study
  Country: US (occurrence: US)
  Receive Date: 20160205
  Receipt Date: 20160205
  Transmission Date: 20160526
  Serious: No
  Sender: FDA-Public Use
  Company Number: US-ABBVIE-15K-163-1447402-00

PATIENT
  Age: 61 Year
  Sex: Female

DRUGS (1)
  1. HUMIRA [Suspect]
     Active Substance: ADALIMUMAB
     Indication: PRODUCT USED FOR UNKNOWN INDICATION
     Route: 058
     Dates: start: 20150809

REACTIONS (7)
  - Hypersensitivity [Recovered/Resolved]
  - Rash macular [Unknown]
  - Pruritus [Unknown]
  - Heart rate irregular [Unknown]
  - Nasal congestion [Unknown]
  - Flushing [Unknown]
  - Palpitations [Unknown]

NARRATIVE: CASE EVENT DATE: 201508
